FAERS Safety Report 8120529-2 (Version None)
Quarter: 2012Q1

REPORT INFORMATION
  Report Type: 
  Country: None (occurrence: None)
  Receive Date: 20120207
  Receipt Date: 20120203
  Transmission Date: 20120608
  Serious: Yes (Other)
  Sender: FDA-Public Use
  Company Number: US-AMGEN-USASP2012007493

PATIENT
  Age: 19 Year
  Sex: Female
  Weight: 75.7 kg

DRUGS (1)
  1. NPLATE [Suspect]
     Indication: IDIOPATHIC THROMBOCYTOPENIC PURPURA
     Dates: start: 20120202

REACTIONS (2)
  - PLATELET COUNT DECREASED [None]
  - EYE HAEMORRHAGE [None]
